FAERS Safety Report 13937045 (Version 2)
Quarter: 2017Q4

REPORT INFORMATION
  Report Type: Spontaneous
  Country: US (occurrence: US)
  Receive Date: 20170905
  Receipt Date: 20171109
  Transmission Date: 20180320
  Serious: Yes (Other)
  Sender: FDA-Public Use
  Company Number: PHEH2017US027715

PATIENT
  Age: 59 Year
  Sex: Female

DRUGS (1)
  1. CLONAZEPAM TABLETS, USP [Suspect]
     Active Substance: CLONAZEPAM
     Indication: ANXIETY
     Dosage: UNK
     Route: 065

REACTIONS (8)
  - Tachyphrenia [Unknown]
  - Insomnia [Unknown]
  - Hyperhidrosis [Unknown]
  - Bipolar disorder [Unknown]
  - Feeling jittery [Unknown]
  - Palpitations [Unknown]
  - Nausea [Unknown]
  - Asthenia [Unknown]
